FAERS Safety Report 9345125 (Version 1)
Quarter: 2013Q2

REPORT INFORMATION
  Report Type: Spontaneous
  Country: CA (occurrence: CA)
  Receive Date: 20130612
  Receipt Date: 20130612
  Transmission Date: 20140414
  Serious: Yes (Other)
  Sender: FDA-Public Use
  Company Number: CHPA2013CA009708

PATIENT
  Age: 47 Year
  Sex: Female

DRUGS (2)
  1. GAS-X ULTRA STRENGTH [Suspect]
     Indication: ABDOMINAL DISTENSION
     Dosage: 180 DF, UNK
     Route: 048
     Dates: start: 2008
  2. GAS-X ULTRA STRENGTH [Suspect]
     Indication: ABDOMINAL DISCOMFORT

REACTIONS (6)
  - Drug dependence [Unknown]
  - Gastrointestinal disorder [Not Recovered/Not Resolved]
  - Skin haemorrhage [Not Recovered/Not Resolved]
  - Abdominal distension [Not Recovered/Not Resolved]
  - Bowel movement irregularity [Not Recovered/Not Resolved]
  - Drug ineffective [Unknown]
